FAERS Safety Report 14733637 (Version 2)
Quarter: 2018Q2

REPORT INFORMATION
  Report Type: Spontaneous
  Country: FR (occurrence: FR)
  Receive Date: 20180409
  Receipt Date: 20180504
  Transmission Date: 20180711
  Serious: Yes (Hospitalization)
  Sender: FDA-Public Use
  Company Number: FR-MYLANLABS-2018M1021756

PATIENT
  Age: 12 Year
  Sex: Female
  Weight: 42.7 kg

DRUGS (6)
  1. ACTISKENAN [Concomitant]
     Active Substance: MORPHINE SULFATE
     Indication: LUNG DISORDER
  2. IFOSFAMIDE. [Suspect]
     Active Substance: IFOSFAMIDE
     Indication: OSTEOSARCOMA
     Dosage: 4160 MG, QD, 4160 MG ONCE EVERY DAY FOR 3 DAYS IN A 21 DAY CYCLE
     Route: 042
     Dates: start: 20170828, end: 20171010
  3. ETOPOSIDE. [Suspect]
     Active Substance: ETOPOSIDE
     Indication: OSTEOSARCOMA
     Dosage: 136 MG, QD, FOR 3 DAYS IN A 21 DAY CYCLE
     Route: 042
     Dates: start: 20170828, end: 20171010
  4. LYRICA [Concomitant]
     Active Substance: PREGABALIN
     Indication: PRODUCT USED FOR UNKNOWN INDICATION
     Dosage: UNK
  5. SKENAN [Concomitant]
     Active Substance: MORPHINE SULFATE
     Indication: LUNG DISORDER
     Dosage: UNK
  6. LENVATINIB [Suspect]
     Active Substance: LENVATINIB
     Indication: OSTEOSARCOMA
     Dosage: 20 MG, QD
     Route: 048
     Dates: start: 20170828

REACTIONS (5)
  - Diarrhoea [Unknown]
  - Vomiting [Recovered/Resolved]
  - Abdominal pain [Unknown]
  - Febrile neutropenia [Recovered/Resolved]
  - Clostridium difficile infection [Recovered/Resolved]

NARRATIVE: CASE EVENT DATE: 20170908
